FAERS Safety Report 5135241-1 (Version None)
Quarter: 2006Q4

REPORT INFORMATION
  Report Type: 
  Country: None (occurrence: None)
  Receive Date: 20061026
  Receipt Date: 20061017
  Transmission Date: 20070319
  Serious: Yes (Death)
  Sender: FDA-Public Use
  Company Number: AT-JNJFOC-20061003827

PATIENT
  Age: 70 Year
  Sex: Male

DRUGS (2)
  1. RISPERDAL [Suspect]
     Indication: AGITATION
     Route: 048
  2. LORAZEPAM [Concomitant]

REACTIONS (1)
  - CARDIAC FAILURE [None]
